FAERS Safety Report 11504145 (Version 2)
Quarter: 2015Q4

REPORT INFORMATION
  Report Type: Spontaneous
  Country: US (occurrence: US)
  Receive Date: 20150914
  Receipt Date: 20151006
  Transmission Date: 20160304
  Serious: No
  Sender: FDA-Public Use
  Company Number: ALCN2015US005775

PATIENT
  Age: 70 Year
  Sex: Female

DRUGS (4)
  1. ILEVRO [Suspect]
     Active Substance: NEPAFENAC
     Indication: POSTOPERATIVE CARE
     Dosage: 1 GTT, BID
     Route: 047
     Dates: start: 20150623, end: 20150818
  2. VIGAMOX [Suspect]
     Active Substance: MOXIFLOXACIN HYDROCHLORIDE
     Indication: POSTOPERATIVE CARE
     Dosage: 1 GTT, UNK
     Route: 047
     Dates: start: 20150618
  3. VIGAMOX [Suspect]
     Active Substance: MOXIFLOXACIN HYDROCHLORIDE
     Dosage: 1 GTT, UNK
     Route: 047
     Dates: start: 20150624
  4. ILEVRO [Suspect]
     Active Substance: NEPAFENAC
     Indication: PREOPERATIVE CARE
     Dosage: 1 GTT, BID
     Route: 047
     Dates: start: 20150616, end: 20150715

REACTIONS (8)
  - Eye irritation [Recovering/Resolving]
  - Lacrimation increased [Recovering/Resolving]
  - Asthenopia [Recovering/Resolving]
  - Ocular hyperaemia [Recovered/Resolved]
  - Blepharitis [Recovering/Resolving]
  - Off label use [Unknown]
  - Dry eye [Recovering/Resolving]
  - Keratitis [Recovering/Resolving]

NARRATIVE: CASE EVENT DATE: 201509
